FAERS Safety Report 24775561 (Version 1)
Quarter: 2024Q4

REPORT INFORMATION
  Report Type: Report from Study
  Country: US (occurrence: US)
  Receive Date: 20241226
  Receipt Date: 20241226
  Transmission Date: 20250114
  Serious: Yes (Other)
  Sender: ABBVIE
  Company Number: US-ABBVIE-6044216

PATIENT
  Age: 64 Year
  Sex: Female

DRUGS (1)
  1. CREON [Suspect]
     Active Substance: PANCRELIPASE AMYLASE\PANCRELIPASE LIPASE\PANCRELIPASE PROTEASE
     Indication: Pancreatic failure
     Dosage: 24000 UNITS
     Route: 048
     Dates: start: 20240911, end: 202412

REACTIONS (5)
  - Pancreatic carcinoma [Unknown]
  - Back pain [Unknown]
  - Drug ineffective [Unknown]
  - Muscle spasms [Unknown]
  - Therapy cessation [Unknown]

NARRATIVE: CASE EVENT DATE: 20240101
